FAERS Safety Report 19251359 (Version 1)
Quarter: 2021Q2

REPORT INFORMATION
  Report Type: Spontaneous
  Country: US (occurrence: US)
  Receive Date: 20210513
  Receipt Date: 20210513
  Transmission Date: 20210717
  Serious: Yes (Hospitalization, Other)
  Sender: FDA-Public Use
  Company Number: US-NOVAST LABORATORIES LTD.-2021NOV000251

PATIENT
  Age: 42 Year
  Sex: Female

DRUGS (1)
  1. FLUOROURACIL. [Suspect]
     Active Substance: FLUOROURACIL
     Indication: ANAL SQUAMOUS CELL CARCINOMA
     Dosage: 5 DAYS CONTINOUS INFUSION
     Route: 042

REACTIONS (2)
  - Stress cardiomyopathy [Recovered/Resolved]
  - Cardiac ventricular thrombosis [Recovered/Resolved]
